FAERS Safety Report 9117968 (Version 3)
Quarter: 2013Q3

REPORT INFORMATION
  Report Type: Report from Study
  Country: NL (occurrence: NL)
  Receive Date: 20130225
  Receipt Date: 20130708
  Transmission Date: 20140515
  Serious: Yes (Hospitalization)
  Sender: FDA-Public Use
  Company Number: PHHO2013NL002815

PATIENT
  Age: 63 Year
  Sex: Male
  Weight: 74.9 kg

DRUGS (10)
  1. METOPROLOL HEXAL [Suspect]
     Indication: ARTERIAL DISORDER
     Dosage: 100 MG, QD
     Dates: start: 20120106, end: 20130128
  2. BUMETANIDE [Suspect]
     Indication: CARDIAC FAILURE CONGESTIVE
     Dosage: 1 MG, QD
     Dates: start: 20090813, end: 20130128
  3. SPIRONOLACTON [Suspect]
     Indication: CARDIAC FAILURE CONGESTIVE
     Dosage: 25 MG, QD
     Dates: start: 20120720, end: 20130128
  4. BLINDED ALISKIREN [Suspect]
     Indication: CARDIAC FAILURE
     Dosage: CODE NOT BROKEN
     Route: 048
     Dates: start: 20110116, end: 20130128
  5. BLINDED ENALAPRIL [Suspect]
     Indication: CARDIAC FAILURE
     Dosage: CODE NOT BROKEN
     Route: 048
     Dates: start: 20110116, end: 20130128
  6. BLINDED NO TREATMENT RECEIVED [Suspect]
     Indication: CARDIAC FAILURE
     Dosage: CODE NOT BROKEN
     Route: 048
     Dates: start: 20110116, end: 20130128
  7. BLINDED ALISKIREN [Suspect]
     Dosage: CODE NOT BROKEN
     Route: 048
     Dates: start: 20130210
  8. BLINDED ENALAPRIL [Suspect]
     Dosage: CODE NOT BROKEN
     Route: 048
     Dates: start: 20130210
  9. BLINDED NO TREATMENT RECEIVED [Suspect]
     Dosage: CODE NOT BROKEN
     Route: 048
     Dates: start: 20130210
  10. HYDROXYCARBAMIDE [Suspect]
     Indication: POLYCYTHAEMIA VERA
     Dosage: 500 MG, BID
     Dates: start: 20120623, end: 20130128

REACTIONS (3)
  - Renal failure acute [Recovered/Resolved]
  - Blood creatinine increased [Recovered/Resolved]
  - Gastroenteritis viral [Recovering/Resolving]
